FAERS Safety Report 22141021 (Version 1)
Quarter: 2023Q1

REPORT INFORMATION
  Report Type: Spontaneous
  Country: US (occurrence: None)
  Receive Date: 20230324
  Receipt Date: 20230324
  Transmission Date: 20230417
  Serious: Yes (Disabling)
  Sender: FDA-Public Use
  Company Number: None

PATIENT
  Age: 43 Year
  Sex: Female
  Weight: 58.5 kg

DRUGS (4)
  1. SQUALANE ZINC SHEER MINERAL SUNSCREEN [Suspect]
     Active Substance: ZINC OXIDE
     Indication: Prophylaxis against solar radiation
     Dosage: FREQUENCY : TWICE A DAY;?
     Route: 061
     Dates: start: 20230301, end: 20230320
  2. VITAMIN B COMPLEX [Concomitant]
     Active Substance: CYANOCOBALAMIN\DEXPANTHENOL\NIACINAMIDE\PYRIDOXINE HYDROCHLORIDE\RIBOFLAVIN 5^-PHOSPHATE SODIUM\THIA
  3. VITAMIN D [Concomitant]
     Active Substance: VITAMIN D NOS
  4. IRON [Concomitant]
     Active Substance: IRON

REACTIONS (5)
  - Skin reaction [None]
  - Rash erythematous [None]
  - Rash pruritic [None]
  - Urticaria [None]
  - Erythema [None]

NARRATIVE: CASE EVENT DATE: 20230320
